FAERS Safety Report 19324794 (Version 1)
Quarter: 2021Q2

REPORT INFORMATION
  Report Type: Spontaneous
  Country: DE (occurrence: DE)
  Receive Date: 20210528
  Receipt Date: 20210528
  Transmission Date: 20210717
  Serious: Yes (Death)
  Sender: FDA-Public Use
  Company Number: DE-TEVA-2021-DE-1916087

PATIENT
  Age: 82 Year
  Sex: Female

DRUGS (7)
  1. ZEBETA [Suspect]
     Active Substance: BISOPROLOL FUMARATE
     Indication: CORONARY ARTERY DISEASE
     Dosage: 3 MILLIGRAM DAILY;
     Route: 048
  2. SIMVASTATIN. [Concomitant]
     Active Substance: SIMVASTATIN
     Dates: start: 20180719, end: 20180721
  3. VALSARTAN. [Concomitant]
     Active Substance: VALSARTAN
     Indication: HYPERTENSION
     Dates: start: 20180715, end: 20180720
  4. TICAGRELOR. [Concomitant]
     Active Substance: TICAGRELOR
     Dates: start: 20180715
  5. LCZ696 [Concomitant]
     Active Substance: SACUBITRIL\VALSARTAN
     Indication: ACUTE MYOCARDIAL INFARCTION
     Route: 048
     Dates: start: 20180715, end: 20180717
  6. EPLERENONE. [Concomitant]
     Active Substance: EPLERENONE
     Dates: start: 20180715
  7. TORASEMID [Concomitant]
     Active Substance: TORSEMIDE
     Dates: start: 20180715

REACTIONS (1)
  - Bradycardia [Fatal]

NARRATIVE: CASE EVENT DATE: 20180719
